FAERS Safety Report 5608268-0 (Version None)
Quarter: 2008Q1

REPORT INFORMATION
  Report Type: 
  Country: None (occurrence: None)
  Receive Date: 20080130
  Receipt Date: 20080117
  Transmission Date: 20080703
  Serious: Yes (Other)
  Sender: FDA-Public Use
  Company Number: US-ELI_LILLY_AND_COMPANY-US200801004908

PATIENT
  Sex: Female
  Weight: 44.2 kg

DRUGS (1)
  1. SOMATROPIN [Suspect]
     Indication: LAURENCE-MOON-BARDET-BIEDL SYNDROME
     Dosage: 1.6 MG, DAILY (1/D)
     Route: 058
     Dates: start: 20060828

REACTIONS (3)
  - OSTEOCHONDROSIS [None]
  - OSTEONECROSIS [None]
  - SPONDYLOLISTHESIS [None]
